FAERS Safety Report 8077582-4 (Version None)
Quarter: 2012Q1

REPORT INFORMATION
  Report Type: 
  Country: None (occurrence: None)
  Receive Date: 20120127
  Receipt Date: 20120125
  Transmission Date: 20120608
  Serious: Yes (Death, Hospitalization)
  Sender: FDA-Public Use
  Company Number: CHPA2012US001990

PATIENT
  Age: 89 Year
  Sex: Male

DRUGS (2)
  1. EXCEDRIN (MIGRAINE) [Suspect]
     Indication: BACK DISORDER
     Dosage: 1-2 DF, QD
     Route: 048
     Dates: start: 20110601, end: 20110828
  2. COUMADIN [Concomitant]
     Indication: IMPLANTABLE DEFIBRILLATOR INSERTION
     Route: 048

REACTIONS (6)
  - PNEUMONIA [None]
  - DEHYDRATION [None]
  - OFF LABEL USE [None]
  - UNDERDOSE [None]
  - MALAISE [None]
  - DECREASED APPETITE [None]
